FAERS Safety Report 7737592-0 (Version None)
Quarter: 2011Q3

REPORT INFORMATION
  Report Type: 
  Country: None (occurrence: None)
  Receive Date: 20110908
  Receipt Date: 20110830
  Transmission Date: 20111222
  Serious: Yes (Hospitalization, Disabling, Other)
  Sender: FDA-Public Use
  Company Number: US-MERCK-1106USA00670

PATIENT
  Age: 78 Year
  Sex: Female

DRUGS (5)
  1. FOSAMAX [Suspect]
     Indication: OSTEOPOROSIS
     Route: 048
     Dates: start: 20040127, end: 20110101
  2. FOSAMAX [Suspect]
     Indication: OSTEOPENIA
     Route: 048
     Dates: start: 20040127, end: 20110101
  3. FOSAMAX [Suspect]
     Route: 048
     Dates: start: 20040101, end: 20070101
  4. FOSAMAX [Suspect]
     Route: 048
     Dates: start: 20040101, end: 20070101
  5. KLOR-CON [Concomitant]
     Route: 065
     Dates: start: 20040101

REACTIONS (59)
  - DYSPNOEA [None]
  - CHOLELITHIASIS [None]
  - DEPRESSION [None]
  - PHARYNGEAL OEDEMA [None]
  - WEIGHT DECREASED [None]
  - PRURITUS [None]
  - INSOMNIA [None]
  - HAEMORRHOIDS [None]
  - FOOT FRACTURE [None]
  - FEMUR FRACTURE [None]
  - LOW TURNOVER OSTEOPATHY [None]
  - YELLOW SKIN [None]
  - HYPERLIPIDAEMIA [None]
  - DYSPHONIA [None]
  - BONE DEFORMITY [None]
  - COMPRESSION FRACTURE [None]
  - TINNITUS [None]
  - THROMBOPHLEBITIS [None]
  - HYPERCHOLESTEROLAEMIA [None]
  - HEADACHE [None]
  - FAT NECROSIS [None]
  - DECREASED APPETITE [None]
  - PAIN IN EXTREMITY [None]
  - AMNESIA [None]
  - OCULAR ICTERUS [None]
  - SPINAL DISORDER [None]
  - DEAFNESS [None]
  - SKIN CANCER [None]
  - ARTHRALGIA [None]
  - ANXIETY [None]
  - CONSTIPATION [None]
  - DYSPHAGIA [None]
  - DYSTONIA [None]
  - FALL [None]
  - OESOPHAGEAL DISORDER [None]
  - MUSCLE INJURY [None]
  - VENOUS INSUFFICIENCY [None]
  - SPINAL COMPRESSION FRACTURE [None]
  - UPPER LIMB FRACTURE [None]
  - HYPERTENSION [None]
  - HIATUS HERNIA [None]
  - ADVERSE DRUG REACTION [None]
  - URINARY INCONTINENCE [None]
  - TARDIVE DYSKINESIA [None]
  - ILEUS [None]
  - GASTROOESOPHAGEAL REFLUX DISEASE [None]
  - ARTHRITIS [None]
  - TYPE 2 DIABETES MELLITUS [None]
  - GAIT DISTURBANCE [None]
  - OEDEMA PERIPHERAL [None]
  - WRIST FRACTURE [None]
  - TENDON INJURY [None]
  - PLEURAL EFFUSION [None]
  - INCREASED TENDENCY TO BRUISE [None]
  - DYSPEPSIA [None]
  - FATIGUE [None]
  - MALIGNANT MELANOMA [None]
  - VISION BLURRED [None]
  - KYPHOSIS [None]
